FAERS Safety Report 10507851 (Version 1)
Quarter: 2014Q4

REPORT INFORMATION
  Report Type: Spontaneous
  Country: CA (occurrence: CA)
  Receive Date: 20141009
  Receipt Date: 20141009
  Transmission Date: 20150528
  Serious: Yes (Other)
  Sender: FDA-Public Use
  Company Number: CA-MYLANLABS-2014M1006506

PATIENT

DRUGS (21)
  1. AMITRIPTYLINE [Suspect]
     Active Substance: AMITRIPTYLINE
     Indication: DEPRESSION
     Dosage: AT BEDTIME
     Route: 065
  2. LOPERAMIDE [Suspect]
     Active Substance: LOPERAMIDE
     Indication: IRRITABLE BOWEL SYNDROME
     Dosage: AS NEEDED
     Route: 065
  3. PHENYTOIN. [Suspect]
     Active Substance: PHENYTOIN
     Indication: GENERALISED TONIC-CLONIC SEIZURE
     Dosage: 300MG DAILY
     Route: 065
  4. FIORINAL WITH CODEINE [Suspect]
     Active Substance: ASPIRIN\BUTALBITAL\CAFFEINE\CODEINE PHOSPHATE
     Indication: OESOPHAGEAL SPASM
     Dosage: HALF-CAPSULE AS NEEDED; APPROXIMATELY FOUR TIMES WEEKLY
     Route: 065
  5. ALGIUM GRIPA CALIENTE [Concomitant]
     Dosage: AS NEEDED
     Route: 065
  6. PSYLLIUM /01328801/ [Suspect]
     Active Substance: PLANTAGO SEED
     Indication: IRRITABLE BOWEL SYNDROME
     Dosage: AS NEEDED
     Route: 065
  7. LACTULOSE. [Suspect]
     Active Substance: LACTULOSE
     Indication: IRRITABLE BOWEL SYNDROME
     Dosage: 3 TABLESPOONS 3-4 TIMES DAILY, AS NEEDED
     Route: 065
  8. LANSOPRAZOLE. [Concomitant]
     Active Substance: LANSOPRAZOLE
     Indication: DYSPEPSIA
     Dosage: 30MG DAILY
     Route: 065
  9. LEVOTHYROXINE SODIUM. [Concomitant]
     Active Substance: LEVOTHYROXINE SODIUM
     Indication: HYPOTHYROIDISM
     Dosage: EACH MORNING
     Route: 065
  10. ACETAMINOPHEN AND CODEINE [Suspect]
     Active Substance: ACETAMINOPHEN\CODEINE PHOSPHATE
     Indication: HEADACHE
     Dosage: AS NEEDED; AVERAGE 2 PER DAY
     Route: 065
  11. CALCIUM CARBONATE. [Concomitant]
     Active Substance: CALCIUM CARBONATE
     Indication: DYSPEPSIA
     Dosage: AS NEEDED; USUALLY THREE TABLETS EACH EVENING
     Route: 048
  12. BUDESONIDE W/FORMOTEROL [Concomitant]
     Indication: ASTHMA
     Dosage: 2 PUFFS TWICE DAILY
     Route: 055
  13. ERYTHROMYCIN. [Suspect]
     Active Substance: ERYTHROMYCIN
     Indication: IRRITABLE BOWEL SYNDROME
     Dosage: AS NEEDED
     Route: 065
  14. RAMIPRIL. [Concomitant]
     Active Substance: RAMIPRIL
     Indication: HYPERTENSION
     Dosage: 2.5MG DAILY
     Route: 065
  15. LORATADINE. [Concomitant]
     Active Substance: LORATADINE
     Indication: HYPERSENSITIVITY
     Route: 065
  16. TERBUTALINE [Concomitant]
     Active Substance: TERBUTALINE
     Indication: ASTHMA
     Dosage: 2 PUFFS DAILY AS NEEDED
     Route: 055
  17. PINAVERIUM BROMIDE [Suspect]
     Active Substance: PINAVERIUM BROMIDE
     Indication: IRRITABLE BOWEL SYNDROME
     Route: 065
  18. SALBUTAMOL [Concomitant]
     Active Substance: ALBUTEROL
     Indication: ASTHMA
     Dosage: TWO 200MICROG PUFFS EVERY 4 HOURS AS NEEDED
     Route: 055
  19. DOMPERIDONE [Suspect]
     Active Substance: DOMPERIDONE
     Indication: IRRITABLE BOWEL SYNDROME
     Route: 065
  20. CHLORDIAZEPOXIDE HCL AND CLIDINIUM BROMIDE [Suspect]
     Active Substance: CHLORDIAZEPOXIDE HYDROCHLORIDE\CLIDINIUM BROMIDE
     Indication: IRRITABLE BOWEL SYNDROME
     Dosage: CHLORDIAZEPOXIDE 5MG/CLIDINIUM BROMIDE 2.5MG 2-3 TIMES DAILY
     Route: 065
  21. CLOPIDOGREL [Concomitant]
     Active Substance: CLOPIDOGREL BISULFATE
     Indication: THROMBOSIS PROPHYLAXIS
     Route: 065

REACTIONS (10)
  - Dizziness [Unknown]
  - Constipation [Unknown]
  - Fatigue [Unknown]
  - Fall [Recovered/Resolved]
  - Electrocardiogram QT prolonged [Unknown]
  - Gastrointestinal motility disorder [Recovering/Resolving]
  - Gastrointestinal disorder [Unknown]
  - Cognitive disorder [Recovering/Resolving]
  - Anticholinergic syndrome [Recovering/Resolving]
  - Generalised tonic-clonic seizure [Recovered/Resolved]
